FAERS Safety Report 23106587 (Version 2)
Quarter: 2023Q4

REPORT INFORMATION
  Report Type: Report from Study
  Country: CA (occurrence: CA)
  Receive Date: 20231026
  Receipt Date: 20231121
  Transmission Date: 20240109
  Serious: Yes (Death)
  Sender: FDA-Public Use
  Company Number: CA-ABBVIE-5426763

PATIENT
  Age: 90 Year
  Sex: Male

DRUGS (1)
  1. LUPRON DEPOT [Suspect]
     Active Substance: LEUPROLIDE ACETATE
     Indication: Prostate cancer
     Route: 030
     Dates: start: 20221213, end: 20230925

REACTIONS (8)
  - Chronic obstructive pulmonary disease [Fatal]
  - Nightmare [Unknown]
  - Skin laceration [Recovering/Resolving]
  - Chromaturia [Recovering/Resolving]
  - Prostatitis [Recovering/Resolving]
  - Fall [Recovering/Resolving]
  - Skin abrasion [Recovering/Resolving]
  - Urinary retention [Recovering/Resolving]

NARRATIVE: CASE EVENT DATE: 20230901
